FAERS Safety Report 20391752 (Version 1)
Quarter: 2022Q1

REPORT INFORMATION
  Report Type: Report from Study
  Country: IT (occurrence: IT)
  Receive Date: 20220128
  Receipt Date: 20220128
  Transmission Date: 20220423
  Serious: Yes (Life-Threatening)
  Sender: FDA-Public Use
  Company Number: IT-ABBVIE-22P-083-4253297-00

PATIENT
  Age: 60 Year
  Sex: Male

DRUGS (7)
  1. VENETOCLAX [Suspect]
     Active Substance: VENETOCLAX
     Indication: Acute myeloid leukaemia
     Route: 048
     Dates: start: 20220114, end: 20220121
  2. IDARUBICIN [Concomitant]
     Active Substance: IDARUBICIN
     Indication: Acute myeloid leukaemia
     Dosage: 15,20 MG
     Route: 042
     Dates: start: 20220109, end: 20220111
  3. FLUDARABINE [Concomitant]
     Active Substance: FLUDARABINE PHOSPHATE
     Indication: Acute myeloid leukaemia
     Route: 042
     Dates: start: 20220109, end: 20220113
  4. CYTARABINE [Concomitant]
     Active Substance: CYTARABINE
     Indication: Acute myeloid leukaemia
     Route: 042
     Dates: start: 20220109, end: 20220113
  5. POSACONAZOLE [Concomitant]
     Active Substance: POSACONAZOLE
     Indication: Product used for unknown indication
     Dosage: 300 MG/DIE
     Dates: start: 20220107, end: 20220123
  6. METOPROLOLO [Concomitant]
     Indication: Product used for unknown indication
     Dates: start: 2013
  7. SIMVASTATIN [Concomitant]
     Active Substance: SIMVASTATIN
     Indication: Product used for unknown indication
     Dosage: 20 MG/DIE
     Dates: start: 2013

REACTIONS (1)
  - Septic shock [Not Recovered/Not Resolved]

NARRATIVE: CASE EVENT DATE: 20220120
